FAERS Safety Report 8158202-7 (Version None)
Quarter: 2012Q1

REPORT INFORMATION
  Report Type: 
  Country: None (occurrence: None)
  Receive Date: 20120222
  Receipt Date: 20120209
  Transmission Date: 20120608
  Serious: Yes (Hospitalization)
  Sender: FDA-Public Use
  Company Number: TR-MYLANLABS-2012S1003261

PATIENT
  Age: 38 Year
  Sex: Female

DRUGS (3)
  1. TETRACYCLINE [Suspect]
     Indication: BRUCELLOSIS
     Route: 065
  2. RIFAMPICIN [Suspect]
     Indication: BRUCELLOSIS
     Route: 065
  3. STREPTOMYCIN [Suspect]
     Indication: BRUCELLOSIS
     Route: 065

REACTIONS (5)
  - HYPOCALCAEMIA [None]
  - ALKALOSIS [None]
  - BLOOD PARATHYROID HORMONE ABNORMAL [None]
  - HYPOKALAEMIA [None]
  - HYPOVITAMINOSIS [None]
